FAERS Safety Report 15916755 (Version 1)
Quarter: 2019Q1

REPORT INFORMATION
  Report Type: Other
  Country: UA (occurrence: UA)
  Receive Date: 20190205
  Receipt Date: 20190205
  Transmission Date: 20190417
  Serious: Yes (Death, Hospitalization)
  Sender: FDA-Public Use
  Company Number: UA-APPCO PHARMA LLC-2062150

PATIENT
  Age: 12 Day
  Weight: 3.28 kg

DRUGS (4)
  1. METRONIDAZOLE. [Suspect]
     Active Substance: METRONIDAZOLE
     Indication: ANTIBIOTIC PROPHYLAXIS
     Route: 065
  2. AMIKACIN SULFATE. [Suspect]
     Active Substance: AMIKACIN SULFATE
     Route: 065
  3. FLUCONAZOLE. [Suspect]
     Active Substance: FLUCONAZOLE
     Route: 065
  4. ROMENEM (MEROPENEM) [Suspect]
     Active Substance: MEROPENEM
     Route: 065

REACTIONS (10)
  - Convulsion neonatal [None]
  - Anaemia neonatal [None]
  - Renal failure neonatal [None]
  - Immunodeficiency congenital [None]
  - Multiple organ dysfunction syndrome [Fatal]
  - Neonatal gastrointestinal haemorrhage [None]
  - Drug ineffective [Fatal]
  - Coma neonatal [None]
  - Multiple organ dysfunction syndrome [None]
  - Necrotising enterocolitis neonatal [None]
